FAERS Safety Report 25687661 (Version 1)
Quarter: 2025Q3

REPORT INFORMATION
  Report Type: Spontaneous
  Country: US (occurrence: US)
  Receive Date: 20250817
  Receipt Date: 20250817
  Transmission Date: 20251020
  Serious: No
  Sender: SANOFI AVENTIS
  Company Number: US-SA-2025SA240344

PATIENT
  Sex: Male

DRUGS (11)
  1. DUPIXENT [Suspect]
     Active Substance: DUPILUMAB
     Indication: Atrial fibrillation
     Dosage: 300 MG, QOW
     Route: 058
  2. ALBUTEROL [Concomitant]
     Active Substance: ALBUTEROL
  3. DOFETILIDE [Concomitant]
     Active Substance: DOFETILIDE
  4. ENTRESTO [Concomitant]
     Active Substance: SACUBITRIL\VALSARTAN
  5. MAGNESIUM CARBONATE [Concomitant]
     Active Substance: MAGNESIUM CARBONATE
  6. METOPROLOL FUMARATE [Concomitant]
     Active Substance: METOPROLOL FUMARATE
  7. ROFLUMILAST [Concomitant]
     Active Substance: ROFLUMILAST
  8. SPIRIVA [Concomitant]
     Active Substance: TIOTROPIUM BROMIDE MONOHYDRATE
  9. SYMBICORT [Concomitant]
     Active Substance: BUDESONIDE\FORMOTEROL FUMARATE DIHYDRATE
  10. VITAMIN C [Concomitant]
     Active Substance: ASCORBIC ACID
  11. XARELTO [Concomitant]
     Active Substance: RIVAROXABAN

REACTIONS (5)
  - Dizziness [Not Recovered/Not Resolved]
  - Fatigue [Not Recovered/Not Resolved]
  - Asthenia [Not Recovered/Not Resolved]
  - Herpes simplex [Not Recovered/Not Resolved]
  - Product use in unapproved indication [Unknown]
